FAERS Safety Report 5777762-4 (Version None)
Quarter: 2008Q2

REPORT INFORMATION
  Report Type: 
  Country: None (occurrence: None)
  Receive Date: 20080618
  Receipt Date: 20080606
  Transmission Date: 20081010
  Serious: Yes (Other)
  Sender: FDA-Public Use
  Company Number: US-PFIZER INC-2008048969

PATIENT
  Sex: Female
  Weight: 63.636 kg

DRUGS (5)
  1. CHANTIX [Suspect]
     Indication: SMOKING CESSATION THERAPY
     Dates: start: 20080311, end: 20080314
  2. PROZAC [Concomitant]
  3. LORATADINE [Concomitant]
  4. LEVOTHYROXINE SODIUM [Concomitant]
  5. RELPAX [Concomitant]

REACTIONS (6)
  - ANXIETY [None]
  - BLOOD URINE PRESENT [None]
  - BURN OESOPHAGEAL [None]
  - BURNING SENSATION [None]
  - GASTRIC DISORDER [None]
  - WEIGHT DECREASED [None]
